FAERS Safety Report 4370968-0 (Version None)
Quarter: 2004Q2

REPORT INFORMATION
  Report Type: 
  Country: None (occurrence: None)
  Receive Date: 20040601
  Receipt Date: 20040525
  Transmission Date: 20050107
  Serious: Yes (Other)
  Sender: FDA-Public Use
  Company Number: JP-JNJFOC-20040503065

PATIENT
  Age: 27 Year
  Sex: Male

DRUGS (5)
  1. RISPERDAL [Suspect]
     Indication: SCHIZOPHRENIA
     Dosage: ORAL
     Route: 048
     Dates: start: 20011115, end: 20040420
  2. TRIHEXYPHENIDYL HYDROCHLORIDE (TRIHEXPHENIDYL HYDRCOCHLORIDE) [Concomitant]
  3. NITRAZEPAM [Concomitant]
  4. LEVOMEPROMAZINE MALEATE (LEVOMEPROMAZINE MALEATE) [Concomitant]
  5. ZOPICLONE (ZOPICLONE) [Concomitant]

REACTIONS (6)
  - CHEST DISCOMFORT [None]
  - OCULOGYRATION [None]
  - SINUS ARRHYTHMIA [None]
  - SOMNOLENCE [None]
  - SPEECH DISORDER [None]
  - TREMOR [None]
